FAERS Safety Report 8805125 (Version 1)
Quarter: 2012Q4

REPORT INFORMATION
  Report Type: 
  Country: US (occurrence: US)
  Receive Date: 20120924
  Receipt Date: 20120924
  Transmission Date: 20130627
  Serious: No
  Sender: FDA-Public Use
  Company Number: US-B.I. PHARMACEUTICALS,INC./RIDGEFIELD-2012-BP-22835BP

PATIENT
  Sex: Female
  Weight: 45 kg

DRUGS (2)
  1. AGGRENOX [Suspect]
     Indication: PROPHYLAXIS
     Route: 048
     Dates: start: 20111031
  2. DIOVAN [Concomitant]
     Indication: HYPOTENSION
     Route: 048

REACTIONS (6)
  - Asthenia [Not Recovered/Not Resolved]
  - Fatigue [Not Recovered/Not Resolved]
  - Inguinal hernia [Recovered/Resolved]
  - Haematochezia [Not Recovered/Not Resolved]
  - Faeces discoloured [Not Recovered/Not Resolved]
  - Dizziness [Not Recovered/Not Resolved]
